FAERS Safety Report 14351403 (Version 2)
Quarter: 2018Q1

REPORT INFORMATION
  Report Type: Spontaneous
  Country: US (occurrence: US)
  Receive Date: 20180104
  Receipt Date: 20180110
  Transmission Date: 20180509
  Serious: No
  Sender: FDA-Public Use
  Company Number: US-PFIZER INC-2017553242

PATIENT
  Age: 56 Year
  Sex: Male
  Weight: 108.8 kg

DRUGS (3)
  1. VISTARIL [Suspect]
     Active Substance: HYDROXYZINE PAMOATE
     Indication: ANXIETY
     Dosage: UNK
  2. VISTARIL [Interacting]
     Active Substance: HYDROXYZINE PAMOATE
     Indication: PANIC ATTACK
  3. OXYCODONE [Interacting]
     Active Substance: OXYCODONE
     Dosage: UNK UNK, DAILY

REACTIONS (2)
  - Drug level decreased [Unknown]
  - Drug interaction [Unknown]

NARRATIVE: CASE EVENT DATE: 201711
